FAERS Safety Report 9214487 (Version 1)
Quarter: 2013Q2

REPORT INFORMATION
  Report Type: Spontaneous
  Country: US (occurrence: US)
  Receive Date: 20130405
  Receipt Date: 20130405
  Transmission Date: 20140414
  Serious: Yes (Other)
  Sender: FDA-Public Use
  Company Number: US-TEVA-395923USA

PATIENT
  Age: 33 Year
  Sex: Female
  Weight: 55.39 kg

DRUGS (4)
  1. PARAGARD 380A [Suspect]
     Indication: CONTRACEPTION
     Route: 015
     Dates: start: 20130121
  2. VINEGAR [Interacting]
  3. CETIRIZINE HYDROCHLORIDE [Concomitant]
     Indication: HYPERSENSITIVITY
     Route: 048
  4. SINGULAIR [Concomitant]
     Indication: ASTHMA

REACTIONS (7)
  - Beta haemolytic streptococcal infection [Not Recovered/Not Resolved]
  - Urinary tract infection [Unknown]
  - Metrorrhagia [Unknown]
  - Abdominal pain [Unknown]
  - Vaginal discharge [Unknown]
  - Fungal infection [Unknown]
  - Drug interaction [Unknown]
